FAERS Safety Report 24542801 (Version 1)
Quarter: 2024Q4

REPORT INFORMATION
  Report Type: Spontaneous
  Country: US (occurrence: US)
  Receive Date: 20241024
  Receipt Date: 20241024
  Transmission Date: 20250114
  Serious: No
  Sender: GLENMARK
  Company Number: US-GLENMARK PHARMACEUTICALS-2024GMK094605

PATIENT

DRUGS (1)
  1. RYALTRIS [Suspect]
     Active Substance: MOMETASONE FUROATE MONOHYDRATE\OLOPATADINE HYDROCHLORIDE
     Indication: Product used for unknown indication
     Dosage: 1 DOSAGE FORM (HE WAS ONLY USING AT NIGHT AND ONLY 1 SPRAY)
     Route: 045
     Dates: start: 20240925

REACTIONS (5)
  - Rhinalgia [Unknown]
  - Condition aggravated [Unknown]
  - Insomnia [Unknown]
  - Product use issue [Unknown]
  - Product after taste [Unknown]

NARRATIVE: CASE EVENT DATE: 20240925
